FAERS Safety Report 22535071 (Version 4)
Quarter: 2023Q4

REPORT INFORMATION
  Report Type: Spontaneous
  Country: US (occurrence: US)
  Receive Date: 20230608
  Receipt Date: 20231031
  Transmission Date: 20240110
  Serious: Yes (Other)
  Sender: FDA-Public Use
  Company Number: US-BRISTOL-MYERS SQUIBB COMPANY-2023-080749

PATIENT
  Age: 93 Year
  Sex: Female

DRUGS (27)
  1. REVLIMID [Suspect]
     Active Substance: LENALIDOMIDE
     Indication: Product used for unknown indication
     Dosage: 1-21 EVERY 28 DAYS
     Route: 048
     Dates: start: 201504
  2. REVLIMID [Suspect]
     Active Substance: LENALIDOMIDE
     Dosage: 09 JUN 2023
  3. ZOVIRAX [Concomitant]
     Active Substance: ACYCLOVIR
     Dosage: TAKE 1 TABLET BY MOUTH TWICE A DAY
     Route: 048
  4. AMIODARONE [Concomitant]
     Active Substance: AMIODARONE
     Dosage: TAKE 400 MG  BY MOUTH TWICE DAILY  TAKE WITH FOOD
     Route: 048
  5. ASPIRIN [Concomitant]
     Active Substance: ASPIRIN
     Dosage: TAKE 81 MG BY MOUTH DAILY
     Route: 048
  6. ATORVASTATIN [Concomitant]
     Active Substance: ATORVASTATIN
     Dosage: TAKE 80 MG BY MOUTH DAILY
     Route: 048
  7. DECADRON [Concomitant]
     Active Substance: DEXAMETHASONE
     Dosage: TAKE 2 TABLETS BY MOUTH EVERY 7 DAYS TAKE WITH FOOD
     Route: 048
  8. DOCONEXENT [Concomitant]
     Active Substance: DOCONEXENT
     Dosage: TAKE 1200 MG BY MOUTH TWICE DAILY
     Route: 048
  9. FAMOTIDINE [Concomitant]
     Active Substance: FAMOTIDINE
     Dosage: TAKE 40 MG BY MOUTH TWICE DAILY
     Route: 048
  10. FLONASE [Concomitant]
     Active Substance: FLUTICASONE PROPIONATE
     Dosage: DAILY AS NEEDED ( ACUTATION NASAL SPRAY SUSPENSION)
     Route: 048
  11. NEURONTIN [Concomitant]
     Active Substance: GABAPENTIN
     Dosage: TAKE ONE CAPSULE BY MOUTH AT 7 AM,3PM AND 2 AT 11 PM
     Route: 048
  12. KLOR-CON [Concomitant]
     Active Substance: POTASSIUM CHLORIDE
     Dosage: TAKE 2 TABLETS BY MOUTH EVERY MORNING AND 1 TABELT IN THE EVENING
     Route: 048
  13. LACTULOSE [Concomitant]
     Active Substance: LACTULOSE
     Indication: Constipation
     Dosage: 10GRAM/15ML ( TAKE 30ML BY MOUTH EVERY 8HRS AS NEEDED)
     Route: 048
  14. XALATAN [Concomitant]
     Active Substance: LATANOPROST
     Dosage: PLACE 1 DROP INTO EACH AFFECTED EYE NIGHTLY AT BEDTIME
     Route: 048
  15. SYNTHROID [Concomitant]
     Active Substance: LEVOTHYROXINE SODIUM
     Dosage: TAKE ONE TABLET BY MOUTH DAILY FOR 30 MIN BEFORE BREAKFAST
     Route: 048
  16. CLARITHROMYCIN [Concomitant]
     Active Substance: CLARITHROMYCIN
     Dosage: TAKE 10 MG BY MOUTH DAILY
     Route: 048
  17. SINGULAIR [Concomitant]
     Active Substance: MONTELUKAST SODIUM
     Dosage: TAKE 10 MG BY MOUTH DAILY
     Route: 048
  18. NITROSTAT [Concomitant]
     Active Substance: NITROGLYCERIN
     Dosage: PLACE 0.4MG UNDER TONGUE AS NEEDED
     Route: 060
  19. FERROUS GLYCINE SULFATE [Concomitant]
     Active Substance: FERROUS GLYCINE SULFATE
     Dosage: 150 MG IRON CAPSULE (TAKE 1 CAPSULE BY MOUTH EVERY DAY)
     Route: 048
  20. DEMADEX [Concomitant]
     Active Substance: TORSEMIDE
     Dosage: TAKE 40 MG BY MOUTH TWICE DAILY
     Route: 048
  21. WIXELA INHUB [Concomitant]
     Active Substance: FLUTICASONE PROPIONATE\SALMETEROL XINAFOATE
     Dosage: 250-50 MCG DOSE INHALATION DISK?INHALE 1 DOSE BY MOUTH TWICE DAILY ?RINSE MOUTH AFTER USE
     Route: 048
  22. FOLVITE [Concomitant]
     Active Substance: FOLIC ACID
     Dosage: TAKE ONE TABLET BY MOUTH EVERY DAY
     Route: 048
  23. PROVENTIL HFA [SALBUTAMOL] [Concomitant]
     Indication: Wheezing
     Dosage: 0.083% (PROVENTIL) 2.5 MG (3 ML- (0.0831NHALE 1 VIAL VIA NEBULIZER 4 TIMES A DAY AS NEEDED FOR  %) N
     Dates: start: 20180530
  24. PROVENTIL HFA [SALBUTAMOL] [Concomitant]
     Indication: Dyspnoea
  25. CALCIUM\VITAMIN D [Concomitant]
     Active Substance: CALCIUM\VITAMIN D
     Route: 048
  26. FUROSEMIDE [Concomitant]
     Active Substance: FUROSEMIDE
     Indication: Product used for unknown indication
  27. LORATADINE [Concomitant]
     Active Substance: LORATADINE
     Indication: Product used for unknown indication

REACTIONS (2)
  - Pneumonia [Recovered/Resolved]
  - Product dose omission issue [Unknown]

NARRATIVE: CASE EVENT DATE: 20230327
